FAERS Safety Report 15038246 (Version 4)
Quarter: 2019Q1

REPORT INFORMATION
  Report Type: Spontaneous
  Country: US (occurrence: US)
  Receive Date: 20180620
  Receipt Date: 20190125
  Transmission Date: 20190417
  Serious: Yes (Hospitalization, Disabling)
  Sender: FDA-Public Use
  Company Number: US-OTSUKA-2018_015765

PATIENT
  Sex: Female

DRUGS (8)
  1. ABILIFY [Suspect]
     Active Substance: ARIPIPRAZOLE
     Indication: BIPOLAR DISORDER
     Dosage: 15 MG, QD
     Route: 065
  2. ABILIFY [Suspect]
     Active Substance: ARIPIPRAZOLE
     Indication: MAJOR DEPRESSION
     Dosage: 20 MG, QD
     Route: 065
     Dates: end: 201004
  3. ABILIFY [Suspect]
     Active Substance: ARIPIPRAZOLE
     Indication: PSYCHOTIC DISORDER
  4. TRAZODONE [Concomitant]
     Active Substance: TRAZODONE HYDROCHLORIDE
     Indication: PRODUCT USED FOR UNKNOWN INDICATION
     Dosage: UNK
     Route: 065
  5. ABILIFY [Suspect]
     Active Substance: ARIPIPRAZOLE
     Indication: SCHIZOPHRENIA
  6. DEPAKOTE [Concomitant]
     Active Substance: DIVALPROEX SODIUM
     Indication: PRODUCT USED FOR UNKNOWN INDICATION
     Dosage: UNK
     Route: 065
  7. ZOLOFT [Concomitant]
     Active Substance: SERTRALINE HYDROCHLORIDE
     Indication: PRODUCT USED FOR UNKNOWN INDICATION
     Dosage: UNK
     Route: 065
  8. RISPERDAL [Concomitant]
     Active Substance: RISPERIDONE
     Indication: PRODUCT USED FOR UNKNOWN INDICATION
     Dosage: UNK
     Route: 065

REACTIONS (22)
  - Shoplifting [Not Recovered/Not Resolved]
  - Compulsive shopping [Not Recovered/Not Resolved]
  - Product use in unapproved indication [Unknown]
  - Disability [Unknown]
  - Anhedonia [Unknown]
  - Homeless [Unknown]
  - Anxiety [Unknown]
  - Mental disorder [Unknown]
  - Theft [Not Recovered/Not Resolved]
  - Mental impairment [Unknown]
  - Gambling disorder [Recovered/Resolved]
  - Social problem [Unknown]
  - Personal relationship issue [Unknown]
  - Compulsive sexual behaviour [Not Recovered/Not Resolved]
  - Economic problem [Unknown]
  - Injury [Unknown]
  - Pain [Unknown]
  - Sexually transmitted disease [Unknown]
  - Emotional distress [Unknown]
  - Fear [Unknown]
  - Unintended pregnancy [Unknown]
  - Loss of employment [Unknown]

NARRATIVE: CASE EVENT DATE: 2005
